FAERS Safety Report 6977011 (Version 3)
Quarter: 2020Q3

REPORT INFORMATION
  Report Type: Report from Study
  Country: TW (occurrence: TW)
  Receive Date: 20090424
  Receipt Date: 20090514
  Transmission Date: 20201104
  Serious: Yes (Hospitalization)
  Sender: FDA-Public Use
  Company Number: TW-WYE-H08997309

PATIENT
  Age: 78 Year
  Sex: Male
  Weight: 41.2 kg

DRUGS (3)
  1. ROFERON?A [Suspect]
     Active Substance: INTERFERON ALFA-2A
     Route: 058
     Dates: start: 20081027, end: 20090410
  2. AVASTIN [Suspect]
     Active Substance: BEVACIZUMAB
     Indication: RENAL CELL CARCINOMA
     Route: 042
     Dates: start: 20081020, end: 20090406
  3. ROFERON?A [Suspect]
     Active Substance: INTERFERON ALFA-2A
     Indication: RENAL CELL CARCINOMA
     Route: 058
     Dates: start: 20081020, end: 20081024

REACTIONS (7)
  - Hip fracture [Recovered/Resolved]
  - Haemoglobin decreased [None]
  - Osteoarthritis [None]
  - Bursitis [None]
  - Tendon disorder [None]
  - Fatigue [None]
  - Fall [None]

NARRATIVE: CASE EVENT DATE: 20090416
